FAERS Safety Report 15191937 (Version 2)
Quarter: 2018Q3

REPORT INFORMATION
  Report Type: Spontaneous
  Country: HR (occurrence: HR)
  Receive Date: 20180724
  Receipt Date: 20180813
  Transmission Date: 20181010
  Serious: Yes (Hospitalization, Other)
  Sender: FDA-Public Use
  Company Number: PHHY2018HR049344

PATIENT
  Sex: Male
  Weight: 1.02 kg

DRUGS (1)
  1. DEXAMETHASONE. [Suspect]
     Active Substance: DEXAMETHASONE
     Indication: FOETAL EXPOSURE DURING PREGNANCY
     Dosage: MATERNAL DOSE : 6 MG, QID
     Route: 064

REACTIONS (7)
  - Infection [Unknown]
  - Foetal exposure during pregnancy [Unknown]
  - Respiratory distress [Unknown]
  - Cerebral ventricle dilatation [Unknown]
  - Necrotising colitis [Unknown]
  - Intraventricular haemorrhage neonatal [Unknown]
  - Premature baby [Unknown]
